FAERS Safety Report 4974323-1 (Version None)
Quarter: 2006Q1

REPORT INFORMATION
  Report Type: 
  Country: None (occurrence: None)
  Receive Date: 20060227
  Receipt Date: 20060104
  Transmission Date: 20060701
  Serious: No
  Sender: FDA-Public Use
  Company Number: PHEH2005US13854

PATIENT
  Sex: Female

DRUGS (4)
  1. ENABLEX [Suspect]
     Indication: HYPERTONIC BLADDER
     Dosage: 7.5 MG; 15 MG OD
     Dates: start: 20051215
  2. SYNTHROID [Concomitant]
  3. PEPCID [Concomitant]
  4. TAMOXIFEN CITRATE [Concomitant]

REACTIONS (4)
  - ABDOMINAL PAIN [None]
  - CONSTIPATION [None]
  - DIZZINESS [None]
  - VISION BLURRED [None]
